FAERS Safety Report 16749910 (Version 1)
Quarter: 2019Q4

REPORT INFORMATION
  Report Type: Spontaneous
  Country: GB (occurrence: GB)
  Receive Date: 20190827
  Receipt Date: 20190827
  Transmission Date: 20200122
  Serious: No
  Sender: FDA-Public Use
  Company Number: None

PATIENT
  Age: 25 Year
  Sex: Female
  Weight: 70 kg

DRUGS (2)
  1. VASELINE ACTIVE FRESH ANTI PERSPIRANT DEODORANT [Suspect]
     Active Substance: ALUMINUM CHLOROHYDRATE
     Indication: PERSONAL HYGIENE
     Route: 061
     Dates: start: 20190814, end: 20190820
  2. PARACETAMOL [Concomitant]
     Active Substance: ACETAMINOPHEN

REACTIONS (2)
  - Application site burn [None]
  - Application site pain [None]

NARRATIVE: CASE EVENT DATE: 20190819
